FAERS Safety Report 16146261 (Version 1)
Quarter: 2019Q2

REPORT INFORMATION
  Report Type: Spontaneous
  Country: US (occurrence: US)
  Receive Date: 20190402
  Receipt Date: 20190402
  Transmission Date: 20190711
  Serious: No
  Sender: FDA-Public Use
  Company Number: US-PFIZER INC-2019136179

PATIENT
  Age: 76 Year
  Sex: Female

DRUGS (5)
  1. HEPARIN SODIUM. [Suspect]
     Active Substance: HEPARIN SODIUM
     Dosage: UNK
  2. KEFLEX [Suspect]
     Active Substance: CEPHALEXIN
     Dosage: UNK
  3. NICKEL [Suspect]
     Active Substance: NICKEL
     Dosage: UNK
  4. IODINE. [Suspect]
     Active Substance: IODINE
     Dosage: UNK
  5. BETADINE [Suspect]
     Active Substance: POVIDONE-IODINE
     Dosage: UNK

REACTIONS (1)
  - Drug hypersensitivity [Unknown]
